FAERS Safety Report 9059742 (Version 3)
Quarter: 2013Q3

REPORT INFORMATION
  Report Type: Spontaneous
  Country: US (occurrence: US)
  Receive Date: 20130211
  Receipt Date: 20130712
  Transmission Date: 20140515
  Serious: No
  Sender: FDA-Public Use
  Company Number: US-009507513-1301USA014670

PATIENT
  Age: 21 Year
  Sex: Female
  Weight: 47.62 kg

DRUGS (1)
  1. NEXPLANON [Suspect]
     Dosage: 68 MG, ROD UP TO 3 YEARS
     Route: 059
     Dates: start: 20120105

REACTIONS (6)
  - Metrorrhagia [Unknown]
  - Paraesthesia [Unknown]
  - Hypoaesthesia [Unknown]
  - Implant site pain [Unknown]
  - Medical device complication [Unknown]
  - Skin lesion [Unknown]
